FAERS Safety Report 7775348-3 (Version None)
Quarter: 2011Q3

REPORT INFORMATION
  Report Type: 
  Country: None (occurrence: None)
  Receive Date: 20110923
  Receipt Date: 20110912
  Transmission Date: 20111222
  Serious: Yes (Other)
  Sender: FDA-Public Use
  Company Number: PHHY2011AU82012

PATIENT
  Age: 47 Year
  Sex: Male

DRUGS (4)
  1. PREDNISOLONE [Concomitant]
     Dosage: UNK UKN, UNK
  2. TACROLIMUS [Concomitant]
     Dosage: UNK UKN, UNK
  3. MYCOPHENOLATE MOFETIL [Suspect]
     Indication: RENAL TRANSPLANT
     Dosage: UNK UKN, UNK
  4. BASILIXIMAB [Suspect]
     Indication: RENAL TRANSPLANT
     Dosage: UNK UKN, UNK

REACTIONS (7)
  - RETICULOCYTE COUNT DECREASED [None]
  - TRANSFERRIN SATURATION INCREASED [None]
  - HAEMOGLOBIN DECREASED [None]
  - APLASTIC ANAEMIA [None]
  - FATIGUE [None]
  - POLYCYTHAEMIA [None]
  - ERYTHEMA INFECTIOSUM [None]
